FAERS Safety Report 16740090 (Version 11)
Quarter: 2020Q3

REPORT INFORMATION
  Report Type: Spontaneous
  Country: US (occurrence: US)
  Receive Date: 20190826
  Receipt Date: 20200711
  Transmission Date: 20201102
  Serious: Yes (Other)
  Sender: FDA-Public Use
  Company Number: PHEH2019US035408

PATIENT
  Sex: Female
  Weight: 56.69 kg

DRUGS (3)
  1. ZOFRAN [Suspect]
     Active Substance: ONDANSETRON HYDROCHLORIDE
     Indication: PRODUCT USED FOR UNKNOWN INDICATION
     Route: 048
  2. ZOFRAN ODT [Suspect]
     Active Substance: ONDANSETRON HYDROCHLORIDE
     Indication: PRODUCT USED FOR UNKNOWN INDICATION
     Dosage: 4 MG, Q6H
     Route: 048
     Dates: start: 20150126
  3. ONDANSETRON [Suspect]
     Active Substance: ONDANSETRON
     Indication: MORNING SICKNESS
     Dosage: 4 MG, Q6H
     Route: 048
     Dates: start: 20150126, end: 201508

REACTIONS (17)
  - Dyspepsia [Unknown]
  - Myometritis [Unknown]
  - Palpitations [Unknown]
  - Vaginal discharge [Unknown]
  - Oedema peripheral [Unknown]
  - Maternal exposure during pregnancy [Unknown]
  - Uterine contractions during pregnancy [Unknown]
  - Injury [Unknown]
  - Chest pain [Unknown]
  - Dysuria [Unknown]
  - Wound infection [Unknown]
  - Product use issue [Unknown]
  - Pelvic pain [Unknown]
  - Foetal hypokinesia [Unknown]
  - Abdominal pain [Unknown]
  - Asthenia [Unknown]
  - Vulvovaginal candidiasis [Unknown]
